FAERS Safety Report 7163547-3 (Version None)
Quarter: 2010Q4

REPORT INFORMATION
  Report Type: 
  Country: None (occurrence: None)
  Receive Date: 20101215
  Receipt Date: 20100506
  Transmission Date: 20110411
  Serious: Yes (Other)
  Sender: FDA-Public Use
  Company Number: CA-PFIZER INC-2010057984

PATIENT
  Age: 60 Year
  Sex: Female
  Weight: 63 kg

DRUGS (14)
  1. LYRICA [Suspect]
     Indication: DEPRESSION
     Dosage: 50 MG, 3X/DAY
     Route: 048
     Dates: start: 20100401
  2. LYRICA [Suspect]
     Indication: PANIC DISORDER
  3. LYRICA [Suspect]
     Indication: MOOD SWINGS
  4. PLAVIX [Concomitant]
     Dosage: 75 MG, 1X/DAY
  5. NOVO-METOPROL [Concomitant]
     Dosage: 25 MG, 2X/DAY
  6. COZAAR [Concomitant]
     Dosage: 100 MG, 1X/DAY
  7. CRESTOR [Concomitant]
     Dosage: 10 MG, 1X/DAY
  8. PANTOLOC ^SOLVAY^ [Concomitant]
     Dosage: 40 MG, 2X/DAY
  9. CIPRALEX [Concomitant]
     Dosage: 20 MG, 1X/DAY
  10. ALPRAZOLAM [Concomitant]
     Dosage: 1 MG, UNK
  11. ZYPREXA [Concomitant]
     Dosage: 5 MG, 3X/DAY
  12. APO-HYDROXYZINE [Concomitant]
     Dosage: 25 MG, 1X/DAY AT BEDTIME
  13. NOVO-TRAZODONE [Concomitant]
     Dosage: 50 MG, UNK
  14. NITROLINGUAL PUMPSPRAY [Concomitant]
     Dosage: 0.4 MG, AS NEEDED

REACTIONS (2)
  - MOOD SWINGS [None]
  - WEIGHT INCREASED [None]
